FAERS Safety Report 10380777 (Version 3)
Quarter: 2014Q4

REPORT INFORMATION
  Report Type: Report from Study
  Country: NL (occurrence: NL)
  Receive Date: 20140813
  Receipt Date: 20141203
  Transmission Date: 20150528
  Serious: Yes (Other)
  Sender: FDA-Public Use
  Company Number: NL-BAYER-2014-074093

PATIENT
  Age: 47 Year
  Sex: Female

DRUGS (3)
  1. BETAFERON [Suspect]
     Active Substance: INTERFERON BETA-1B
     Indication: RELAPSING-REMITTING MULTIPLE SCLEROSIS
     Dosage: UNK
     Dates: start: 201206
  2. RIVOTRIL [Concomitant]
     Active Substance: CLONAZEPAM
     Dosage: 1X 0.5
  3. PAROXETINE [Concomitant]
     Active Substance: PAROXETINE\PAROXETINE HYDROCHLORIDE
     Dosage: 1X10

REACTIONS (3)
  - Multiple sclerosis [None]
  - Dental caries [None]
  - JC virus test positive [None]

NARRATIVE: CASE EVENT DATE: 2012
